FAERS Safety Report 10776062 (Version 2)
Quarter: 2015Q4

REPORT INFORMATION
  Report Type: Report from Study
  Country: US (occurrence: US)
  Receive Date: 20150209
  Receipt Date: 20151001
  Transmission Date: 20160304
  Serious: Yes (Hospitalization, Other)
  Sender: FDA-Public Use
  Company Number: US-ALEXION PHARMACEUTICALS INC.-A201500375

PATIENT

DRUGS (1)
  1. SOLIRIS [Suspect]
     Active Substance: ECULIZUMAB
     Indication: PAROXYSMAL NOCTURNAL HAEMOGLOBINURIA
     Route: 042

REACTIONS (2)
  - Unevaluable event [Unknown]
  - Unevaluable event [Unknown]

NARRATIVE: CASE EVENT DATE: 20150202
